FAERS Safety Report 4399819-5 (Version None)
Quarter: 2004Q3

REPORT INFORMATION
  Report Type: 
  Country: None (occurrence: None)
  Receive Date: 20040716
  Receipt Date: 20040329
  Transmission Date: 20050211
  Serious: Yes (Hospitalization)
  Sender: FDA-Public Use
  Company Number: US-AMGEN-US070754

PATIENT
  Age: 69 Year
  Sex: Male

DRUGS (15)
  1. ETANERCEPT [Suspect]
     Indication: WEGENER'S GRANULOMATOSIS
     Dates: end: 20030901
  2. PREDNISONE [Concomitant]
  3. IMURAN [Concomitant]
  4. BACTRIM [Concomitant]
  5. CLORAZEPATE DIPOTASSIUM [Concomitant]
  6. HUMIBID-OTC [Concomitant]
  7. LIPITOR [Concomitant]
  8. WARFARIN SODIUM [Concomitant]
  9. SEREVENT [Concomitant]
  10. FLOVENT [Concomitant]
  11. ASPIRIN [Concomitant]
  12. MULTI-VITAMINS [Concomitant]
  13. CALCIUM [Concomitant]
  14. PRILOSEC [Concomitant]
  15. GLYBURIDE [Concomitant]

REACTIONS (1)
  - CARDIAC FAILURE CONGESTIVE [None]
